FAERS Safety Report 5300194-X (Version None)
Quarter: 2007Q2

REPORT INFORMATION
  Report Type: 
  Country: None (occurrence: None)
  Receive Date: 20070411
  Receipt Date: 20070326
  Transmission Date: 20071010
  Serious: Yes (Hospitalization, Disabling)
  Sender: FDA-Public Use
  Company Number: CAR-2007-006

PATIENT
  Age: 35 Year
  Sex: Female

DRUGS (65)
  1. SUCRALFATE [Suspect]
  2. ZEBETA [Suspect]
  3. ALPRAZOLAM [Suspect]
     Dosage: 3 MG
  4. DEXAMETHASONE 0.5MG TAB [Suspect]
  5. CLOTRIMAZOLE [Suspect]
  6. CLONAZEPAM [Suspect]
     Indication: MUSCLE SPASMS
  7. TRAZODONE HCL [Suspect]
  8. GABAPENTIN [Suspect]
  9. FLUOXETINE HYDROCHLORIDE [Suspect]
  10. ATENOLOL [Suspect]
     Indication: HYPERTENSION
     Dosage: 50 MG
  11. AMLODIPINE [Suspect]
     Indication: HYPERTENSION
     Dosage: 5 MG
  12. CEPHALEXIN [Suspect]
     Dosage: 1500MG, ORAL
     Route: 048
  13. DIAZEPAM [Suspect]
  14. ECONAZOLE NITRATE [Suspect]
  15. ERYTHROMYCIN [Suspect]
     Dosage: 500 MG
  16. FLUCONAZOLE [Suspect]
  17. LANSOPRAZOLE [Suspect]
  18. LISINOPRIL [Suspect]
  19. LOSARTAN POTASSIUM [Suspect]
  20. MELOXICAM [Suspect]
  21. OMEPRAZOLE [Suspect]
  22. QUININE SULFATE [Suspect]
  23. TRAMADOL HCL [Suspect]
  24. TRIAZOLAM [Suspect]
  25. VERAPAMIL [Suspect]
     Indication: HYPERTENSION
     Dosage: 120MG
  26. ADVAIR DISKUS 100/50 [Suspect]
  27. BUPROPION HCL [Suspect]
  28. CETIRIZINE HCL [Suspect]
  29. AUGMENTIN '125' [Suspect]
  30. FLUTICASONE PROPIONATE [Suspect]
  31. LATANOPROST [Suspect]
  32. CARISOPRODOL [Suspect]
  33. ZYDONE [Suspect]
  34. ALLEGRA-D 12 HOUR [Suspect]
  35. MOMETASONE FUROATE [Suspect]
  36. CANDESARTAN CILEXETIL [Suspect]
  37. ESOMEPROMAZOLE [Suspect]
  38. LOTRISONE [Suspect]
  39. RIZATRIPTAN BENZOATE [Suspect]
  40. LOMOTIL [Suspect]
  41. KETOCONAZOLE [Suspect]
  42. SINEMET [Suspect]
  43. METAXALONE [Suspect]
  44. PETHIDINE HYDROCHLORIDE [Suspect]
  45. PERCOCET [Suspect]
  46. BACTRIM DS [Suspect]
  47. CODICLEAR (GUALIFENESIN+HYDROCODONE BITARTRATE) [Suspect]
  48. MOXIFLOXACIN HYDROCHLORIDE [Suspect]
  49. ROFECOXIB [Suspect]
  50. CEFAZOLIN SODIUM [Suspect]
  51. DURATRUSS (GUAIFENESIN+PSEUDOEPHEDRINE HYDROCHLORIDE) [Suspect]
  52. LORTAB [Suspect]
  53. MUPIROCIN [Suspect]
  54. OSELTAMIVIR [Suspect]
  55. ENDAL-HD (CHLORPHENIRAMINE MALEATE/HYDROCODONE BITARTRATE+PHENYLEPHRIN [Suspect]
  56. TRIAMCINOLONE ACETONIDE [Suspect]
  57. EXGEST LA (GUAIFENESIN+PHENYLPROPANOLAMINE) [Suspect]
  58. MESCOLOR (CHLORPHENAMINE+PSEUDOEPHEDRINE) [Suspect]
  59. LORCET-HD [Suspect]
  60. ECONAZOLE NITRATE [Suspect]
  61. ARTHROTEC [Suspect]
  62. CELECOXIB [Suspect]
  63. LASIX [Suspect]
  64. METOPROLOL SUCCINATE [Suspect]
  65. OLMESARTAN MEDOXOMIL [Suspect]

REACTIONS (24)
  - ALANINE AMINOTRANSFERASE INCREASED [None]
  - ARTHRITIS [None]
  - ASPARTATE AMINOTRANSFERASE INCREASED [None]
  - BLOOD ALKALINE PHOSPHATASE INCREASED [None]
  - BLOOD CHLORIDE DECREASED [None]
  - BLOOD CHOLESTEROL INCREASED [None]
  - BLOOD SODIUM DECREASED [None]
  - BRONCHITIS [None]
  - CHOLELITHIASIS [None]
  - DEEP VEIN THROMBOSIS [None]
  - DIZZINESS [None]
  - DRUG INTERACTION [None]
  - GLAUCOMA [None]
  - NEUROPATHY PERIPHERAL [None]
  - OSTEOARTHRITIS [None]
  - PHLEBITIS [None]
  - PURPURA SENILE [None]
  - RENAL FAILURE [None]
  - RESORPTION BONE INCREASED [None]
  - TARSAL TUNNEL SYNDROME [None]
  - THROMBOPHLEBITIS SUPERFICIAL [None]
  - VASCULITIS [None]
  - VERTIGO POSITIONAL [None]
  - VESTIBULAR DISORDER [None]
